FAERS Safety Report 10795865 (Version 1)
Quarter: 2015Q1

REPORT INFORMATION
  Report Type: Report from Study
  Country: MX (occurrence: MX)
  Receive Date: 20150216
  Receipt Date: 20150216
  Transmission Date: 20150721
  Serious: Yes (Death, Hospitalization, Other)
  Sender: FDA-Public Use
  Company Number: MX-ORION CORPORATION ORION PHARMA-ENTC2010-0072

PATIENT
  Age: 64 Year
  Sex: Male

DRUGS (2)
  1. STALEVO [Suspect]
     Active Substance: CARBIDOPA\ENTACAPONE\LEVODOPA
     Dosage: STRENGTH: 50/12.5/200 MG
     Route: 048
     Dates: start: 200903, end: 20100207
  2. STALEVO [Suspect]
     Active Substance: CARBIDOPA\ENTACAPONE\LEVODOPA
     Indication: PARKINSON^S DISEASE
     Route: 048
     Dates: start: 2003

REACTIONS (8)
  - Disease complication [Unknown]
  - Sepsis [Fatal]
  - Intestinal obstruction [Unknown]
  - Appendicitis [Unknown]
  - Respiratory arrest [Fatal]
  - Wrong technique in drug usage process [Unknown]
  - Thrombosis mesenteric vessel [Unknown]
  - Peritonitis [Unknown]

NARRATIVE: CASE EVENT DATE: 2003
